FAERS Safety Report 6828433-4 (Version None)
Quarter: 2010Q3

REPORT INFORMATION
  Report Type: 
  Country: None (occurrence: None)
  Receive Date: 20100708
  Receipt Date: 20100708
  Transmission Date: 20110219
  Serious: Yes (Other)
  Sender: FDA-Public Use
  Company Number: None

PATIENT
  Sex: Male

DRUGS (1)
  1. FLUTICASONE PROPIONATE [Suspect]
     Dosage: 1 OR 2 SRAYS EACH NOSTRIL
     Dates: start: 20100611, end: 20100611

REACTIONS (1)
  - CHEST DISCOMFORT [None]
